FAERS Safety Report 18443155 (Version 2)
Quarter: 2021Q2

REPORT INFORMATION
  Report Type: Spontaneous
  Country: US (occurrence: US)
  Receive Date: 20201029
  Receipt Date: 20210510
  Transmission Date: 20210717
  Serious: Yes (Death, Hospitalization)
  Sender: FDA-Public Use
  Company Number: US-TEVA-2020-US-1842092

PATIENT
  Age: 76 Year
  Sex: Male

DRUGS (12)
  1. ANTI?THYMOCYTE GLOBULIN (RABBIT) NOS [Suspect]
     Active Substance: LAPINE T-LYMPHOCYTE IMMUNE GLOBULIN
     Indication: IMMUNOSUPPRESSANT DRUG THERAPY
  2. AZATHIOPRINE. [Suspect]
     Active Substance: AZATHIOPRINE
     Indication: GIANT CELL MYOCARDITIS
     Dosage: 50 MILLIGRAM DAILY;
     Route: 065
  3. METHYLPREDNISOLONE. [Suspect]
     Active Substance: METHYLPREDNISOLONE
     Indication: IMMUNOSUPPRESSANT DRUG THERAPY
  4. MYCOPHENOLATE MOFETIL. [Suspect]
     Active Substance: MYCOPHENOLATE MOFETIL
     Indication: GIANT CELL MYOCARDITIS
     Dosage: 1000 MILLIGRAM DAILY;
     Route: 065
  5. CICLOSPORIN [Suspect]
     Active Substance: CYCLOSPORINE
     Indication: GIANT CELL MYOCARDITIS
     Dosage: 100 MILLIGRAM DAILY; WITH A BLOOD CONCENTRATION GOAL OF 200 TO 300 NG/ML
     Route: 065
  6. MYCOPHENOLATE MOFETIL. [Suspect]
     Active Substance: MYCOPHENOLATE MOFETIL
     Indication: IMMUNOSUPPRESSANT DRUG THERAPY
  7. AZATHIOPRINE. [Suspect]
     Active Substance: AZATHIOPRINE
     Indication: IMMUNOSUPPRESSANT DRUG THERAPY
  8. LIDOCAINE. [Concomitant]
     Active Substance: LIDOCAINE
     Indication: VENTRICULAR TACHYCARDIA
     Route: 065
  9. METHYLPREDNISOLONE. [Suspect]
     Active Substance: METHYLPREDNISOLONE
     Indication: GIANT CELL MYOCARDITIS
     Dosage: 1 GRAM DAILY; FOR 3 DAYS WITH RAPID TAPERING IN THE FOLLOWING DAYS
     Route: 042
  10. CICLOSPORIN [Suspect]
     Active Substance: CYCLOSPORINE
     Indication: IMMUNOSUPPRESSANT DRUG THERAPY
     Dosage: 150 MILLIGRAM DAILY;
     Route: 065
  11. ANTI?THYMOCYTE GLOBULIN (RABBIT) NOS [Suspect]
     Active Substance: LAPINE T-LYMPHOCYTE IMMUNE GLOBULIN
     Indication: GIANT CELL MYOCARDITIS
     Dosage: 1 MG/KG 1DOSE
     Route: 065
  12. MEXILETINE [Concomitant]
     Active Substance: MEXILETINE
     Indication: VENTRICULAR TACHYCARDIA
     Route: 065

REACTIONS (6)
  - Septic shock [Fatal]
  - Transaminases increased [Unknown]
  - Cytomegalovirus infection reactivation [Recovering/Resolving]
  - Colitis [Unknown]
  - Tracheitis [Unknown]
  - Cardiac failure acute [Fatal]
